FAERS Safety Report 9935074 (Version 1)
Quarter: 2014Q1

REPORT INFORMATION
  Report Type: Spontaneous
  Country: US (occurrence: US)
  Receive Date: 20140228
  Receipt Date: 20140228
  Transmission Date: 20141002
  Serious: Yes (Other)
  Sender: FDA-Public Use
  Company Number: US-PFIZER INC-2014055754

PATIENT
  Age: 92 Year
  Sex: Female
  Weight: 53.97 kg

DRUGS (2)
  1. DILANTIN-125 [Suspect]
     Indication: GRAND MAL CONVULSION
     Dosage: 260 MG, 1X/DAY (AT NIGHT)
  2. DILANTIN-125 [Suspect]
     Dosage: 300 MG, 1X/DAY (AT NIGHT)

REACTIONS (11)
  - Loss of consciousness [Unknown]
  - Fall [Unknown]
  - Fatigue [Unknown]
  - Somnolence [Unknown]
  - Confusional state [Unknown]
  - Nervousness [Unknown]
  - Tremor [Unknown]
  - Constipation [Unknown]
  - Asthenia [Unknown]
  - Yellow skin [Unknown]
  - Balance disorder [Unknown]
